FAERS Safety Report 21369262 (Version 1)
Quarter: 2022Q3

REPORT INFORMATION
  Report Type: Spontaneous
  Country: US (occurrence: US)
  Receive Date: 20220923
  Receipt Date: 20220923
  Transmission Date: 20221027
  Serious: No
  Sender: FDA-Public Use
  Company Number: US-CIPLA LTD.-2022US05069

PATIENT
  Age: 51 Year
  Sex: Male

DRUGS (1)
  1. LANREOTIDE ACETATE [Suspect]
     Active Substance: LANREOTIDE ACETATE
     Indication: Neuroendocrine tumour
     Dosage: 120 MILLIGRAM, UNK
     Route: 058
     Dates: start: 20220812

REACTIONS (4)
  - Incorrect dose administered [Not Recovered/Not Resolved]
  - Syringe issue [Unknown]
  - Incorrect dose administered by device [Not Recovered/Not Resolved]
  - Needle issue [Unknown]

NARRATIVE: CASE EVENT DATE: 20220812
